FAERS Safety Report 8664947 (Version 2)
Quarter: 2013Q4

REPORT INFORMATION
  Report Type: Spontaneous
  Country: US (occurrence: US)
  Receive Date: 20120714
  Receipt Date: 20131101
  Transmission Date: 20140711
  Serious: No
  Sender: FDA-Public Use
  Company Number: US-009507513-1207USA002150

PATIENT
  Sex: Female

DRUGS (2)
  1. SIMVASTATIN TABLETS, USP [Suspect]
     Route: 048
  2. VESICARE [Suspect]
     Dosage: 5 MG, QD
     Route: 048
     Dates: start: 20110612

REACTIONS (3)
  - Muscular weakness [Recovered/Resolved]
  - Myalgia [Unknown]
  - Drug ineffective [Unknown]
